FAERS Safety Report 21919540 (Version 1)
Quarter: 2023Q1

REPORT INFORMATION
  Report Type: Spontaneous
  Country: US (occurrence: None)
  Receive Date: 20230126
  Receipt Date: 20230126
  Transmission Date: 20230418
  Serious: Yes (Other)
  Sender: FDA-Public Use
  Company Number: None

PATIENT
  Age: 1 Day
  Sex: Male

DRUGS (1)
  1. FENTANYL CITRATE [Suspect]
     Active Substance: FENTANYL CITRATE
     Dosage: OTHER FREQUENCY : EVERY 4 HOURS PRN;?
     Route: 042

REACTIONS (3)
  - Oxygen saturation decreased [None]
  - Infantile apnoea [None]
  - Seizure [None]

NARRATIVE: CASE EVENT DATE: 20230110
